FAERS Safety Report 25633700 (Version 1)
Quarter: 2025Q3

REPORT INFORMATION
  Report Type: Spontaneous
  Country: US (occurrence: None)
  Receive Date: 20250801
  Receipt Date: 20250801
  Transmission Date: 20251021
  Serious: Yes (Disabling, Other)
  Sender: FDA-CTU
  Company Number: None

PATIENT
  Age: 66 Year
  Sex: Female
  Weight: 60.75 kg

DRUGS (12)
  1. ZICAM COLD REMEDY NASAL SWABS (HOMEOPATHICS) [Suspect]
     Active Substance: HOMEOPATHICS\ZINC ACETATE\ZINC GLUCONATE
     Indication: Nasopharyngitis
     Dosage: OTHER QUANTITY : 1 SWAB?FREQUENCY : TWICE A DAY?OTHER ROUTE : NOSE?
     Route: 050
  2. PROPRANOLOL [Concomitant]
     Active Substance: PROPRANOLOL HYDROCHLORIDE
  3. ROSUVASTATIN [Concomitant]
     Active Substance: ROSUVASTATIN
  4. FLUOXETINE [Concomitant]
     Active Substance: FLUOXETINE HYDROCHLORIDE
  5. PROGESTERONE [Concomitant]
     Active Substance: PROGESTERONE
  6. ASPIRIN [Concomitant]
     Active Substance: ASPIRIN
  7. MAGNESIUM CITRATE [Concomitant]
     Active Substance: MAGNESIUM CITRATE
  8. immuplex [Concomitant]
  9. cataplex [Concomitant]
  10. catalyn [Concomitant]
  11. VITAMIN B COMPLEX [Concomitant]
     Active Substance: CYANOCOBALAMIN\DEXPANTHENOL\NIACINAMIDE\PYRIDOXINE HYDROCHLORIDE\RIBOFLAVIN 5^-PHOSPHATE SODIUM\THIA
  12. echinacea C [Concomitant]

REACTIONS (8)
  - Pyrexia [None]
  - Headache [None]
  - Myalgia [None]
  - Lethargy [None]
  - Chest pain [None]
  - Dizziness [None]
  - Palpitations [None]
  - Hypersomnia [None]

NARRATIVE: CASE EVENT DATE: 20250711
